FAERS Safety Report 15471119 (Version 1)
Quarter: 2018Q4

REPORT INFORMATION
  Report Type: Spontaneous
  Country: US (occurrence: US)
  Receive Date: 20181006
  Receipt Date: 20181006
  Transmission Date: 20190205
  Serious: Yes (Other)
  Sender: FDA-Public Use
  Company Number: US-AMGEN INC.-USASP2018137138

PATIENT
  Age: 43 Year
  Sex: Female

DRUGS (3)
  1. MILK THISTLE [Concomitant]
     Active Substance: DIETARY SUPPLEMENT\HERBALS\MILK THISTLE
     Indication: MIGRAINE
     Dosage: UNK
  2. PETASITES HYBRIDUS [Concomitant]
     Indication: MIGRAINE
     Dosage: UNK
  3. AIMOVIG [Suspect]
     Active Substance: ERENUMAB-AOOE
     Indication: MIGRAINE
     Dosage: 70 MG, UNK
     Route: 065
     Dates: start: 20180928

REACTIONS (5)
  - Dyslexia [Recovered/Resolved]
  - Dizziness [Unknown]
  - Aphasia [Recovered/Resolved]
  - Confusional state [Recovering/Resolving]
  - Cognitive disorder [Recovering/Resolving]

NARRATIVE: CASE EVENT DATE: 20180928
